FAERS Safety Report 12819760 (Version 1)
Quarter: 2016Q4

REPORT INFORMATION
  Report Type: Other
  Country: None (occurrence: US)
  Receive Date: 20161006
  Receipt Date: 20161006
  Transmission Date: 20170207
  Serious: No
  Sender: FDA-Public Use
  Company Number: US-JEROME STEVENS PHARMACEUTICALS, INC.-1058051

PATIENT
  Age: 44 Year
  Sex: Female

DRUGS (1)
  1. LEVOTHYROXINE SODIUM. [Suspect]
     Active Substance: LEVOTHYROXINE SODIUM

REACTIONS (7)
  - Insomnia [None]
  - Tremor [None]
  - Palpitations [None]
  - Vomiting [None]
  - Abdominal pain [None]
  - Hyperhidrosis [None]
  - Nausea [None]
